FAERS Safety Report 14491302 (Version 1)
Quarter: 2018Q1

REPORT INFORMATION
  Report Type: Report from Study
  Country: CO (occurrence: CO)
  Receive Date: 20180206
  Receipt Date: 20180206
  Transmission Date: 20180509
  Serious: Yes (Disabling, Other)
  Sender: FDA-Public Use
  Company Number: CO-EMD SERONO-E2B_90018526

PATIENT
  Age: 52 Year
  Sex: Female

DRUGS (1)
  1. REBIF [Suspect]
     Active Substance: INTERFERON BETA-1A
     Indication: MULTIPLE SCLEROSIS
     Route: 058
     Dates: start: 20170921

REACTIONS (6)
  - Hepatitis [Unknown]
  - Blindness unilateral [Unknown]
  - Pain [Unknown]
  - Hepatomegaly [Not Recovered/Not Resolved]
  - Pruritus [Unknown]
  - Back pain [Unknown]

NARRATIVE: CASE EVENT DATE: 201712
